FAERS Safety Report 7942572-6 (Version None)
Quarter: 2011Q4

REPORT INFORMATION
  Report Type: 
  Country: None (occurrence: None)
  Receive Date: 20111128
  Receipt Date: 20111118
  Transmission Date: 20120403
  Serious: Yes (Death, Hospitalization)
  Sender: FDA-Public Use
  Company Number: LB-GLAXOSMITHKLINE-B0764912A

PATIENT
  Sex: Female

DRUGS (4)
  1. VENLAFAXINE [Concomitant]
  2. LAMICTAL [Suspect]
     Indication: BIPOLAR I DISORDER
     Dosage: 25MG PER DAY
     Route: 048
     Dates: start: 20111018, end: 20111026
  3. RISPERDAL [Concomitant]
  4. CONCURRENT MEDICATIONS [Concomitant]

REACTIONS (1)
  - STEVENS-JOHNSON SYNDROME [None]
